FAERS Safety Report 25970556 (Version 1)
Quarter: 2025Q4

REPORT INFORMATION
  Report Type: Report from Study
  Country: US (occurrence: US)
  Receive Date: 20251028
  Receipt Date: 20251028
  Transmission Date: 20260117
  Serious: Yes (Death)
  Sender: ALEXION PHARMACEUTICALS
  Company Number: US-AstraZeneca-CH-00980184A

PATIENT
  Age: 32 Year
  Sex: Female

DRUGS (1)
  1. OLAPARIB [Suspect]
     Active Substance: OLAPARIB
     Dosage: 300 MILLIGRAM, BID

REACTIONS (1)
  - Death [Fatal]

NARRATIVE: CASE EVENT DATE: 20251001
